FAERS Safety Report 5988293-0 (Version None)
Quarter: 2008Q4

REPORT INFORMATION
  Report Type: 
  Country: None (occurrence: None)
  Receive Date: 20081204
  Receipt Date: 20081120
  Transmission Date: 20090506
  Serious: Yes (Hospitalization, Other)
  Sender: FDA-Public Use
  Company Number: 08-001861

PATIENT
  Age: 40 Year
  Sex: Female

DRUGS (9)
  1. LOESTRIN 1.5/30 [Suspect]
     Dosage: UNK
     Dates: end: 20071101
  2. REBIF [Suspect]
     Indication: MULTIPLE SCLEROSIS
     Dosage: 44 MCG SC 3X WEEK SUBCUTANEOUS
     Route: 058
     Dates: start: 20070530, end: 20070801
  3. LISINOPRIL (LISINOPRIL DIHYDRATE) [Concomitant]
  4. ZOLOFT [Concomitant]
  5. VITAMINS NOS (VITAMINS NOS) [Concomitant]
  6. ALLERGY MEDICATION [Concomitant]
  7. AGGRENOX [Concomitant]
  8. DETROL /01350201/ (TOLTERODINE) [Concomitant]
  9. XANAX [Concomitant]

REACTIONS (4)
  - CAROTID ARTERY OCCLUSION [None]
  - CEREBROVASCULAR ACCIDENT [None]
  - SUICIDAL IDEATION [None]
  - TRANSIENT ISCHAEMIC ATTACK [None]
